FAERS Safety Report 22310972 (Version 1)
Quarter: 2023Q2

REPORT INFORMATION
  Report Type: Spontaneous
  Country: US (occurrence: US)
  Receive Date: 20230511
  Receipt Date: 20230511
  Transmission Date: 20230721
  Serious: No
  Sender: FDA-Public Use
  Company Number: US-TEVA-2023-US-2881334

PATIENT
  Sex: Female

DRUGS (2)
  1. QVAR REDIHALER [Suspect]
     Active Substance: BECLOMETHASONE DIPROPIONATE
     Indication: Asthma
     Dosage: DOSAGE FORM: INHALATION - AEROSOL, STRENGTH: 80 MCG
     Route: 065
  2. QVAR REDIHALER [Suspect]
     Active Substance: BECLOMETHASONE DIPROPIONATE
     Dosage: DOSAGE FORM: INHALATION - AEROSOL, STRENGTH: 80 MCG
     Route: 065

REACTIONS (5)
  - Lung disorder [Unknown]
  - Withdrawal syndrome [Unknown]
  - Device delivery system issue [Unknown]
  - Device malfunction [Unknown]
  - Device issue [Unknown]
